FAERS Safety Report 6981222-2 (Version None)
Quarter: 2010Q3

REPORT INFORMATION
  Report Type: 
  Country: None (occurrence: None)
  Receive Date: 20100914
  Receipt Date: 20100902
  Transmission Date: 20110219
  Serious: Yes (Hospitalization, Other)
  Sender: FDA-Public Use
  Company Number: US-PFIZER INC-2010080352

PATIENT
  Sex: Female

DRUGS (1)
  1. CHANTIX [Suspect]
     Indication: SMOKING CESSATION THERAPY
     Dosage: STARTER AND CONTINUOUS PACKS
     Dates: start: 20080410, end: 20081127

REACTIONS (10)
  - ACTIVITIES OF DAILY LIVING IMPAIRED [None]
  - AGGRESSION [None]
  - ANXIETY [None]
  - DEPRESSION [None]
  - EMOTIONAL DISORDER [None]
  - HOMICIDAL IDEATION [None]
  - INSOMNIA [None]
  - MENTAL STATUS CHANGES [None]
  - MOOD SWINGS [None]
  - SUICIDE ATTEMPT [None]
